FAERS Safety Report 12930427 (Version 2)
Quarter: 2016Q4

REPORT INFORMATION
  Report Type: Report from Study
  Country: None (occurrence: AU)
  Receive Date: 20161110
  Receipt Date: 20161206
  Transmission Date: 20170207
  Serious: Yes (Hospitalization, Other)
  Sender: FDA-Public Use
  Company Number: AU-ABBVIE-16P-008-1776058-00

PATIENT
  Age: 67 Year
  Sex: Male

DRUGS (1)
  1. LUCRIN [Suspect]
     Active Substance: LEUPROLIDE ACETATE
     Indication: PROSTATE CANCER
     Dosage: DURATION: SEVERAL MONTHS
     Route: 030

REACTIONS (4)
  - Renal disorder [Not Recovered/Not Resolved]
  - Haemorrhage [Recovered/Resolved]
  - Ureteric cancer [Unknown]
  - Hydronephrosis [Unknown]

NARRATIVE: CASE EVENT DATE: 20160927
